FAERS Safety Report 7164574-2 (Version None)
Quarter: 2010Q4

REPORT INFORMATION
  Report Type: 
  Country: None (occurrence: None)
  Receive Date: 20101215
  Receipt Date: 20101206
  Transmission Date: 20110411
  Serious: Yes (Other)
  Sender: FDA-Public Use
  Company Number: GXKR2010ES13785

PATIENT
  Age: 65 Year
  Sex: Male

DRUGS (5)
  1. METHOTREXATE [Suspect]
     Indication: COLITIS ULCERATIVE
     Dosage: UNK
     Route: 065
     Dates: start: 20010601, end: 20071101
  2. PREDNISONE [Suspect]
     Indication: COLITIS ULCERATIVE
     Dosage: 5 MG/DAY
     Route: 065
  3. CORTICOSTEROID NOS [Suspect]
     Indication: COLITIS ULCERATIVE
     Route: 065
  4. AZATHIOPRINE [Concomitant]
  5. MERCAPTOPURINE [Concomitant]

REACTIONS (5)
  - HUMAN HERPESVIRUS 8 INFECTION [None]
  - KAPOSI'S SARCOMA [None]
  - NODULE [None]
  - PROCTOCOLECTOMY [None]
  - SKIN LESION [None]
